FAERS Safety Report 7355436-6 (Version None)
Quarter: 2011Q1

REPORT INFORMATION
  Report Type: 
  Country: None (occurrence: None)
  Receive Date: 20110316
  Receipt Date: 20110309
  Transmission Date: 20110831
  Serious: Yes (Death, Hospitalization, Other)
  Sender: FDA-Public Use
  Company Number: JP-ELI_LILLY_AND_COMPANY-JP200907003551

PATIENT
  Age: 64 Year
  Sex: Female
  Weight: 37.5 kg

DRUGS (9)
  1. GEMZAR [Suspect]
     Dates: start: 20070101
  2. CISPLATIN [Concomitant]
     Indication: LUNG ADENOCARCINOMA STAGE III
     Dosage: UNK, UNK
     Route: 042
     Dates: start: 20040101
  3. VINORELBINE /00988502/ [Concomitant]
     Indication: LUNG ADENOCARCINOMA STAGE III
     Dosage: UNK, UNK
     Route: 042
     Dates: start: 20040101
  4. GEFITINIB [Concomitant]
     Indication: LUNG ADENOCARCINOMA
     Dosage: UNK, UNK
     Route: 048
     Dates: start: 20050101
  5. PACLITAXEL [Concomitant]
     Indication: LUNG ADENOCARCINOMA
     Route: 042
  6. IRINOTECAN HYDROCHLORIDE [Concomitant]
     Indication: LUNG ADENOCARCINOMA
     Dosage: UNK, UNK
     Route: 042
     Dates: start: 20070101
  7. CARBOPLATIN [Concomitant]
     Indication: LUNG ADENOCARCINOMA
     Route: 042
  8. TAXOTERE [Concomitant]
     Indication: LUNG ADENOCARCINOMA
     Dosage: UNK, UNK
     Route: 042
     Dates: start: 20080601, end: 20090101
  9. GEMZAR [Suspect]
     Indication: LUNG ADENOCARCINOMA
     Route: 042

REACTIONS (3)
  - NEOPLASM MALIGNANT [None]
  - ACUTE MYELOID LEUKAEMIA [None]
  - PNEUMONIA [None]
